FAERS Safety Report 26073226 (Version 1)
Quarter: 2025Q4

REPORT INFORMATION
  Report Type: Spontaneous
  Country: US (occurrence: US)
  Receive Date: 20251121
  Receipt Date: 20251121
  Transmission Date: 20260118
  Serious: Yes (Other)
  Sender: SANOFI AVENTIS
  Company Number: US-SA-2025SA345538

PATIENT
  Sex: Female

DRUGS (1)
  1. DUPIXENT [Suspect]
     Active Substance: DUPILUMAB
     Indication: Dermatitis atopic
     Dosage: 300 MG

REACTIONS (5)
  - Cataract [Unknown]
  - Eyelid skin dryness [Recovered/Resolved]
  - Eyelid exfoliation [Recovered/Resolved]
  - Erythema of eyelid [Recovered/Resolved]
  - Dry eye [Recovered/Resolved]
